FAERS Safety Report 9442900 (Version 1)
Quarter: 2013Q3

REPORT INFORMATION
  Report Type: Spontaneous
  Country: US (occurrence: None)
  Receive Date: 20130805
  Receipt Date: 20130805
  Transmission Date: 20140515
  Serious: Yes (Other)
  Sender: FDA-Public Use
  Company Number: None

PATIENT
  Age: 57 Year
  Sex: Male
  Weight: 74.84 kg

DRUGS (1)
  1. SAVELLA [Suspect]
     Indication: MIGRAINE PROPHYLAXIS
     Dosage: 50MG ONCE DAILY PO
     Route: 048
     Dates: start: 20130710, end: 20130722

REACTIONS (2)
  - Micturition urgency [None]
  - Quality of life decreased [None]
